FAERS Safety Report 10029829 (Version 3)
Quarter: 2014Q4

REPORT INFORMATION
  Report Type: Spontaneous
  Country: US (occurrence: None)
  Receive Date: 20140320
  Receipt Date: 20141105
  Transmission Date: 20150528
  Serious: Yes (Other)
  Sender: FDA-Public Use
  Company Number: 2014-US-002759

PATIENT
  Age: 45 Year
  Sex: Female
  Weight: 74.8 kg

DRUGS (7)
  1. XYREM [Suspect]
     Active Substance: SODIUM OXYBATE
     Indication: SOMNOLENCE
     Route: 048
     Dates: start: 201305, end: 2013
  2. FOLIC ACID (FOLIC ACID) [Concomitant]
     Active Substance: FOLIC ACID
  3. TRAMADOL (TRAMDOL HYDROCHLORIDE) [Concomitant]
  4. METHOTREXATE (METHOTREXATE) [Concomitant]
     Active Substance: METHOTREXATE
  5. XYREM [Suspect]
     Active Substance: SODIUM OXYBATE
     Indication: FIBROMYALGIA
     Route: 048
     Dates: start: 201305, end: 2013
  6. XYREM [Suspect]
     Active Substance: SODIUM OXYBATE
     Indication: NARCOLEPSY
     Route: 048
     Dates: start: 201305, end: 2013
  7. ARAVA [Suspect]
     Active Substance: LEFLUNOMIDE
     Indication: ANKYLOSING SPONDYLITIS
     Dates: start: 201404

REACTIONS (2)
  - Ankylosing spondylitis [None]
  - Anxiety [None]

NARRATIVE: CASE EVENT DATE: 20140226
